FAERS Safety Report 14071698 (Version 1)
Quarter: 2017Q4

REPORT INFORMATION
  Report Type: Spontaneous
  Country: US (occurrence: US)
  Receive Date: 20171010
  Receipt Date: 20171010
  Transmission Date: 20180321
  Serious: No
  Sender: FDA-Public Use
  Company Number: US-SA-2017SA152097

PATIENT
  Sex: Male

DRUGS (1)
  1. DUPIXENT [Suspect]
     Active Substance: DUPILUMAB
     Indication: DERMATITIS ATOPIC
     Route: 058
     Dates: start: 20170504, end: 20170808

REACTIONS (2)
  - Conjunctivitis [Recovered/Resolved]
  - Skin mass [Recovered/Resolved]

NARRATIVE: CASE EVENT DATE: 20170731
